FAERS Safety Report 9700240 (Version 1)
Quarter: 2013Q4

REPORT INFORMATION
  Report Type: Spontaneous
  Country: FR (occurrence: None)
  Receive Date: 20131119
  Receipt Date: 20131119
  Transmission Date: 20140711
  Serious: Yes (Hospitalization, Disabling, Other)
  Sender: FDA-Public Use
  Company Number: AUR-APL-2013-09534

PATIENT
  Age: 51 Year
  Sex: Female

DRUGS (9)
  1. BISOPROLOL (BISOPROLOL) [Suspect]
     Indication: PRODUCT USED FOR UNKNOWN INDICATION
     Dosage: 10 MG910 MG, 1 IN 1 D), ORAL
  2. RAPAMUNE (SIROLIMUS) [Suspect]
     Indication: RENAL TRANSPLANT
     Dosage: 1 MG {1MG, 1 IN 1 D), ORAL
     Route: 048
     Dates: start: 201106, end: 2013
  3. TAHOR (ATORVASTATIN CALCIUM) [Suspect]
     Indication: DYSLIPIDAEMIA
     Dosage: 40 MG (40 MG, 1 IN 1 D), ORAL
     Dates: start: 2008
  4. CORTANCYL (PREDNISONE) [Suspect]
     Indication: RENAL TRANSPLANT
     Dosage: 10 MG (10 MG, 1 IN 1 D), ORAL
     Dates: start: 20110507
  5. CELLCEPT (MYCOPHENOLATE MOFETIL) TABLET [Suspect]
     Indication: RENAL TRANSPLANT
     Dosage: 1000 MG (500 MG, 2 IN 1 D), ORAL
     Dates: start: 20110507
  6. UVEDOSE [Suspect]
     Indication: PRODUCT USED FOR UNKNOWN INDICATION
     Dosage: 0.0667 DOSAGE FORMS (1 DOSAGE FORMS , 1 IN 15 D), ORAL
     Route: 048
  7. EUPANTOL [Suspect]
     Indication: PRODUCT USED FOR UNKNOWN INDICATION
  8. FOLIC ACID [Suspect]
     Indication: PRODUCT USED FOR UNKNOWN INDICATION
  9. EUPRESSYL [Concomitant]

REACTIONS (4)
  - Lymphoedema [None]
  - Inflammation [None]
  - Erythema [None]
  - Breast cancer [None]
